FAERS Safety Report 4366917-1 (Version None)
Quarter: 2004Q2

REPORT INFORMATION
  Report Type: 
  Country: None (occurrence: None)
  Receive Date: 20040527
  Receipt Date: 20040527
  Transmission Date: 20050107
  Serious: Yes (Life-Threatening)
  Sender: FDA-Public Use
  Company Number: None

PATIENT
  Age: 45 Year
  Sex: Male
  Weight: 117.9352 kg

DRUGS (4)
  1. PAXIL [Suspect]
     Dosage: 1 TIME PER DAY
  2. AMBIEN [Concomitant]
     Indication: INSOMNIA
  3. TRAZODONE HCL [Concomitant]
  4. REMERON [Concomitant]

REACTIONS (4)
  - ABNORMAL BEHAVIOUR [None]
  - IMPRISONMENT [None]
  - MEDICATION ERROR [None]
  - OVERDOSE [None]
